FAERS Safety Report 8185113-3 (Version None)
Quarter: 2012Q1

REPORT INFORMATION
  Report Type: 
  Country: None (occurrence: None)
  Receive Date: 20120301
  Receipt Date: 20120221
  Transmission Date: 20120608
  Serious: Yes (Other)
  Sender: FDA-Public Use
  Company Number: AUR-APL-2012-00843

PATIENT
  Age: 22 Year
  Sex: Male
  Weight: 67 kg

DRUGS (2)
  1. CEFTRIAXONE [Suspect]
     Indication: URETHRITIS
     Dosage: (1 GM), INTRAMUSCULAR
     Route: 030
  2. ZITHROMAX [Suspect]
     Indication: URETHRITIS
     Dosage: (1 GM), ORAL
     Route: 048
     Dates: start: 20111121, end: 20111121

REACTIONS (1)
  - DRUG RESISTANCE [None]
